FAERS Safety Report 20198800 (Version 1)
Quarter: 2021Q4

REPORT INFORMATION
  Report Type: Report from Study
  Country: CN (occurrence: CN)
  Receive Date: 20211217
  Receipt Date: 20211217
  Transmission Date: 20220304
  Serious: Yes (Other)
  Sender: FDA-Public Use
  Company Number: CN-GILEAD-2021-0561533

PATIENT

DRUGS (2)
  1. TENOFOVIR DISOPROXIL FUMARATE [Suspect]
     Active Substance: TENOFOVIR DISOPROXIL FUMARATE
     Indication: Acute hepatitis B
     Dosage: .3 G, QD
     Route: 048
  2. INTERFERON [Concomitant]
     Active Substance: INTERFERON

REACTIONS (1)
  - Renal tubular injury [Unknown]
